FAERS Safety Report 14347371 (Version 1)
Quarter: 2018Q1

REPORT INFORMATION
  Report Type: Spontaneous
  Country: US (occurrence: US)
  Receive Date: 20180103
  Receipt Date: 20180103
  Transmission Date: 20180509
  Serious: Yes (Other)
  Sender: FDA-Public Use
  Company Number: None

PATIENT
  Age: 50 Year
  Sex: Female
  Weight: 53.52 kg

DRUGS (2)
  1. OSELTAMIVIR PHOSPHATE CAPSULES USP 75 MG [Suspect]
     Active Substance: OSELTAMIVIR PHOSPHATE
     Indication: INFLUENZA
     Route: 048
     Dates: start: 20171130, end: 20171201
  2. IBUPROFEN. [Concomitant]
     Active Substance: IBUPROFEN

REACTIONS (8)
  - Eye swelling [None]
  - Abdominal pain upper [None]
  - Headache [None]
  - Impaired healing [None]
  - Blister [None]
  - Rash [None]
  - Skin exfoliation [None]
  - Ocular hyperaemia [None]

NARRATIVE: CASE EVENT DATE: 20171204
